FAERS Safety Report 18419531 (Version 2)
Quarter: 2020Q4

REPORT INFORMATION
  Report Type: Report from Study
  Country: CA (occurrence: CA)
  Receive Date: 20201023
  Receipt Date: 20201028
  Transmission Date: 20210114
  Serious: Yes (Other)
  Sender: FDA-Public Use
  Company Number: CA-SA-2020SA296717

PATIENT

DRUGS (12)
  1. HYDROXYZINE [Concomitant]
     Active Substance: HYDROXYZINE HYDROCHLORIDE
  2. AQUAPHOR [Concomitant]
     Active Substance: PETROLATUM
  3. DESONIDE. [Concomitant]
     Active Substance: DESONIDE
  4. DUPILUMAB [Suspect]
     Active Substance: DUPILUMAB
     Indication: DERMATITIS ATOPIC
     Dosage: 300 MG, 1X
     Route: 058
     Dates: start: 20201020, end: 20201020
  5. TACROLIMUS. [Concomitant]
     Active Substance: TACROLIMUS
  6. ARISTOCORT [TRIAMCINOLONE] [Concomitant]
  7. GLAXAL BASE [Concomitant]
  8. BLEXTEN [Concomitant]
     Active Substance: BILASTINE
  9. AMCINONIDE. [Concomitant]
     Active Substance: AMCINONIDE
  10. GRAVOL [Concomitant]
     Active Substance: DIMENHYDRINATE
  11. BETADERM [BETAMETHASONE VALERATE] [Concomitant]
  12. ELOCOM [Concomitant]
     Active Substance: MOMETASONE FUROATE

REACTIONS (4)
  - Fear of injection [Recovered/Resolved]
  - Incorrect dose administered [Unknown]
  - Pallor [Recovering/Resolving]
  - Neurogenic shock [Recovered/Resolved]

NARRATIVE: CASE EVENT DATE: 20201020
